FAERS Safety Report 15780647 (Version 2)
Quarter: 2019Q1

REPORT INFORMATION
  Report Type: Spontaneous
  Country: CA (occurrence: CA)
  Receive Date: 20190102
  Receipt Date: 20190302
  Transmission Date: 20190417
  Serious: Yes (Other)
  Sender: FDA-Public Use
  Company Number: CA-CELLTRION INC.-2018CA024480

PATIENT

DRUGS (5)
  1. INFLECTRA [Suspect]
     Active Substance: INFLIXIMAB-DYYB
     Dosage: 5 MG/KG, (500 MG) ON 0, 2, 6 WEEKS AND EVERY 8 WEEKS
     Route: 042
     Dates: start: 20181121
  2. INFLECTRA [Suspect]
     Active Substance: INFLIXIMAB-DYYB
     Dosage: 5 MG/KG, (500 MG) ON 0, 2, 6 WEEKS AND EVERY 8 WEEKS
     Route: 042
     Dates: start: 20190215
  3. INFLECTRA [Suspect]
     Active Substance: INFLIXIMAB-DYYB
     Dosage: 5 MG/KG, (500 MG) ON 0, 2, 6 WEEKS AND EVERY 8 WEEKS
     Route: 042
     Dates: start: 20181219
  4. INFLECTRA [Suspect]
     Active Substance: INFLIXIMAB-DYYB
     Indication: CROHN^S DISEASE
     Dosage: 5 MG/KG, (500 MG) ON 0, 2, 6 WEEKS AND EVERY 8 WEEKS
     Route: 042
     Dates: start: 20181108
  5. PREDNISONE. [Concomitant]
     Active Substance: PREDNISONE
     Dosage: 10 MG (TAPERING (STARTED AT 50 MG)
     Route: 048
     Dates: start: 201808

REACTIONS (9)
  - Arthralgia [Unknown]
  - Skin exfoliation [Unknown]
  - Impaired healing [Unknown]
  - Uveitis [Unknown]
  - Anal fissure [Unknown]
  - Wound [Unknown]
  - Alopecia [Unknown]
  - Aphthous ulcer [Unknown]
  - Dry skin [Unknown]
